FAERS Safety Report 25572368 (Version 1)
Quarter: 2025Q3

REPORT INFORMATION
  Report Type: Spontaneous
  Country: US (occurrence: US)
  Receive Date: 20250717
  Receipt Date: 20250717
  Transmission Date: 20251021
  Serious: Yes (Other)
  Sender: RADIUS PHARM
  Company Number: US-RADIUS HEALTH INC.-US-RADIUS-25050997

PATIENT
  Sex: Female
  Weight: 68.481 kg

DRUGS (1)
  1. TYMLOS [Suspect]
     Active Substance: ABALOPARATIDE
     Indication: Illness
     Dosage: 80 MICROGRAM, QD
     Route: 058

REACTIONS (5)
  - Blood pressure increased [Recovered/Resolved]
  - Abdominal pain upper [Recovered/Resolved]
  - Abdominal distension [Recovered/Resolved]
  - Dyspnoea [Recovered/Resolved]
  - Product use in unapproved indication [Unknown]
